FAERS Safety Report 20425180 (Version 1)
Quarter: 2022Q1

REPORT INFORMATION
  Report Type: Spontaneous
  Country: JP (occurrence: JP)
  Receive Date: 20220204
  Receipt Date: 20220204
  Transmission Date: 20220423
  Serious: No
  Sender: FDA-Public Use
  Company Number: JP-TAKEDA-2021TJP004210

PATIENT
  Age: 66 Year
  Sex: Female

DRUGS (1)
  1. CABOMETYX [Suspect]
     Active Substance: CABOZANTINIB S-MALATE
     Indication: Renal cell carcinoma recurrent
     Dosage: 20 MG
     Route: 048
     Dates: start: 202012

REACTIONS (4)
  - Malaise [Recovered/Resolved]
  - Hand-foot-and-mouth disease [Recovered/Resolved]
  - Hair colour changes [Unknown]
  - Diarrhoea [Recovered/Resolved]
